FAERS Safety Report 25981273 (Version 2)
Quarter: 2025Q4

REPORT INFORMATION
  Report Type: Spontaneous
  Country: KR (occurrence: KR)
  Receive Date: 20251030
  Receipt Date: 20251106
  Transmission Date: 20260118
  Serious: Yes (Death, Other)
  Sender: TAKEDA
  Company Number: KR-TAKEDA-2025TUS096145

PATIENT
  Age: 49 Year
  Sex: Female

DRUGS (1)
  1. FRUZAQLA [Suspect]
     Active Substance: FRUQUINTINIB
     Indication: Colon cancer
     Dosage: 5 MILLIGRAM

REACTIONS (5)
  - Colon cancer [Fatal]
  - Pyrexia [Unknown]
  - Hyperhidrosis [Unknown]
  - Cold sweat [Unknown]
  - Chills [Unknown]
